FAERS Safety Report 8084191-X (Version None)
Quarter: 2012Q1

REPORT INFORMATION
  Report Type: 
  Country: None (occurrence: None)
  Receive Date: 20120128
  Receipt Date: 20110208
  Transmission Date: 20120608
  Serious: No
  Sender: FDA-Public Use
  Company Number: US-ABBOTT-11P-163-0704753-00

PATIENT
  Sex: Male
  Weight: 108.96 kg

DRUGS (9)
  1. HYDROCHLOROTHIAZIDE [Concomitant]
     Indication: HYPERTENSION
  2. LUNESTA [Concomitant]
     Indication: PRODUCT USED FOR UNKNOWN INDICATION
  3. ARAVA [Concomitant]
     Indication: RHEUMATOID ARTHRITIS
  4. PENNSAID [Concomitant]
     Indication: PRODUCT USED FOR UNKNOWN INDICATION
  5. FISH OIL [Concomitant]
     Indication: SUPPLEMENTATION THERAPY
  6. FENTANYL [Concomitant]
     Indication: PAIN
     Dosage: PATCH
  7. HUMIRA [Suspect]
     Indication: RHEUMATOID ARTHRITIS
     Dates: start: 20110104, end: 20110204
  8. PLAQUENIL [Concomitant]
     Indication: RHEUMATOID ARTHRITIS
  9. INDOCIN [Concomitant]
     Indication: RHEUMATOID ARTHRITIS

REACTIONS (2)
  - HYPOAESTHESIA [None]
  - PSORIASIS [None]
